FAERS Safety Report 8817168 (Version 1)
Quarter: 2012Q4

REPORT INFORMATION
  Report Type: Spontaneous
  Country: US (occurrence: None)
  Receive Date: 20121003
  Receipt Date: 20121003
  Transmission Date: 20130627
  Serious: No
  Sender: FDA-Public Use
  Company Number: None

PATIENT
  Age: 43 Year
  Sex: Female

DRUGS (2)
  1. IPRATROPIUM  BROMIDE [Suspect]
     Dosage: 0.06% two sprays in each nostril qid intranasally
     Dates: start: 20120601, end: 20120615
  2. IPRATROPIUM BROMIDE [Suspect]
     Dosage: 0.06% two sprays in each nostril qid intranasally
     Dates: start: 20120924, end: 20121001

REACTIONS (5)
  - Nasal congestion [None]
  - Nasal oedema [None]
  - Ear discomfort [None]
  - Oropharyngeal pain [None]
  - Product substitution issue [None]
